FAERS Safety Report 9005960 (Version 1)
Quarter: 2013Q1

REPORT INFORMATION
  Report Type: Spontaneous
  Country: US (occurrence: US)
  Receive Date: 20130110
  Receipt Date: 20130110
  Transmission Date: 20140127
  Serious: Yes (Other)
  Sender: FDA-Public Use
  Company Number: US-009507513-0901USA02120

PATIENT
  Sex: Male
  Weight: 19.51 kg

DRUGS (6)
  1. SINGULAIR [Suspect]
     Indication: ASTHMA
     Dosage: 1 DF, QD
     Route: 048
     Dates: start: 20070406, end: 20080420
  2. SINGULAIR [Suspect]
     Indication: MULTIPLE ALLERGIES
     Dosage: 1 DF, QD
     Route: 048
     Dates: start: 2008
  3. ZYRTEC [Concomitant]
  4. FLONASE [Concomitant]
  5. PULMICORT RESPULES [Concomitant]
  6. XOPENEX [Concomitant]

REACTIONS (3)
  - Mood altered [Recovered/Resolved]
  - Abnormal behaviour [Recovered/Resolved]
  - Aggression [Recovered/Resolved]
